FAERS Safety Report 7479942-9 (Version None)
Quarter: 2011Q2

REPORT INFORMATION
  Report Type: 
  Country: None (occurrence: None)
  Receive Date: 20110516
  Receipt Date: 20110503
  Transmission Date: 20111010
  Serious: Yes (Hospitalization)
  Sender: FDA-Public Use
  Company Number: FR-BIOGENIDEC-2011BI016876

PATIENT
  Age: 24 Year
  Sex: Female
  Weight: 94 kg

DRUGS (1)
  1. TYSABRI [Suspect]
     Indication: MULTIPLE SCLEROSIS
     Route: 042
     Dates: start: 20110309, end: 20110502

REACTIONS (2)
  - ANGIOEDEMA [None]
  - HYPERSENSITIVITY [None]
